FAERS Safety Report 8959754 (Version 1)
Quarter: 2012Q4

REPORT INFORMATION
  Report Type: 
  Country: US (occurrence: US)
  Receive Date: 20121212
  Receipt Date: 20121212
  Transmission Date: 20130627
  Serious: Yes (Life-Threatening, Hospitalization)
  Sender: FDA-Public Use
  Company Number: US-009507513-1211USA011698

PATIENT
  Age: 65 Year
  Sex: Female

DRUGS (3)
  1. DULERA [Suspect]
     Indication: ASTHMA
     Dosage: 2 puff, bid
     Route: 055
     Dates: start: 201204, end: 20121125
  2. DULERA [Suspect]
     Indication: ASTHMA
     Dosage: 2 puff, bid
     Route: 055
     Dates: start: 20121126
  3. ZESTRIL [Suspect]

REACTIONS (1)
  - Swollen tongue [Recovering/Resolving]
